FAERS Safety Report 25604885 (Version 1)
Quarter: 2025Q3

REPORT INFORMATION
  Report Type: Spontaneous
  Country: CN (occurrence: CN)
  Receive Date: 20250725
  Receipt Date: 20250725
  Transmission Date: 20251020
  Serious: Yes (Life-Threatening, Hospitalization, Other)
  Sender: SANOFI AVENTIS
  Company Number: CN-SA-2025SA210337

PATIENT
  Age: 25 Year
  Sex: Female
  Weight: 36 kg

DRUGS (1)
  1. ZOLPIDEM TARTRATE [Suspect]
     Active Substance: ZOLPIDEM TARTRATE
     Indication: Sleep disorder
     Dosage: 50 DF, QD
     Route: 048
     Dates: start: 20250718, end: 20250718

REACTIONS (7)
  - Shock [Recovering/Resolving]
  - Depressed level of consciousness [Recovered/Resolved]
  - Somnolence [Recovering/Resolving]
  - Hypopnoea [Recovering/Resolving]
  - Sinus tachycardia [Recovered/Resolved]
  - Hypotension [Recovered/Resolved]
  - Intentional overdose [Recovering/Resolving]

NARRATIVE: CASE EVENT DATE: 20250718
